FAERS Safety Report 6791204-1 (Version None)
Quarter: 2010Q2

REPORT INFORMATION
  Report Type: 
  Country: None (occurrence: None)
  Receive Date: 20100624
  Receipt Date: 20100204
  Transmission Date: 20101027
  Serious: No
  Sender: FDA-Public Use
  Company Number: US-BAUSCH-2010BL000682

PATIENT
  Age: 78 Year
  Sex: Female

DRUGS (6)
  1. BRIMONIDINE TARTRATE [Suspect]
     Indication: INTRAOCULAR PRESSURE INCREASED
     Route: 047
     Dates: start: 20090301, end: 20100204
  2. ADVANCED EYE RELIEF/REDNESS LUBRICANT EYE DROPS [Suspect]
     Indication: KERATOCONJUNCTIVITIS SICCA
     Route: 047
     Dates: start: 20100101, end: 20100204
  3. ADVANCED EYE RELIEF/NIGHT TIME LUBRICANT EYE OINTMENT PF [Suspect]
     Indication: KERATOCONJUNCTIVITIS SICCA
     Route: 047
     Dates: start: 20100101, end: 20100204
  4. MULTIPLE VITAMINS [Concomitant]
  5. HYPOTEARS DDPF [Concomitant]
     Indication: KERATOCONJUNCTIVITIS SICCA
     Dates: end: 20100101
  6. HYPOTEARS DDPF [Concomitant]
     Dates: start: 20100205

REACTIONS (2)
  - HYPERSENSITIVITY [None]
  - INFLUENZA LIKE ILLNESS [None]
